FAERS Safety Report 5557053-7 (Version None)
Quarter: 2007Q4

REPORT INFORMATION
  Report Type: 
  Country: None (occurrence: None)
  Receive Date: 20071214
  Receipt Date: 20071212
  Transmission Date: 20080405
  Serious: Yes (Death, Other)
  Sender: FDA-Public Use
  Company Number: US-WYE-H01559407

PATIENT
  Age: 69 Year
  Sex: Male

DRUGS (4)
  1. TORISEL [Suspect]
     Indication: GLIOBLASTOMA MULTIFORME
     Route: 042
     Dates: start: 20060720, end: 20061116
  2. DEXAMETHASONE TAB [Concomitant]
     Indication: GLIOBLASTOMA MULTIFORME
  3. TEMOZOLOMIDE [Suspect]
     Indication: GLIOBLASTOMA MULTIFORME
     Route: 048
     Dates: start: 20060720, end: 20060101
  4. TEMOZOLOMIDE [Suspect]
     Dosage: 200 MG/M2 DAYS 1-5 (ADJUVANT CYCLES)
     Route: 048
     Dates: start: 20060101, end: 20061106

REACTIONS (3)
  - MULTI-ORGAN FAILURE [None]
  - PNEUMOCYSTIS JIROVECI PNEUMONIA [None]
  - PULMONARY EMBOLISM [None]
